FAERS Safety Report 20864925 (Version 2)
Quarter: 2022Q2

REPORT INFORMATION
  Report Type: Report from Study
  Country: JP (occurrence: JP)
  Receive Date: 20220524
  Receipt Date: 20220607
  Transmission Date: 20220721
  Serious: No
  Sender: FDA-Public Use
  Company Number: JP-ALXN-A202109638AA

PATIENT
  Age: 48 Year
  Sex: Male
  Weight: 77 kg

DRUGS (3)
  1. STRENSIQ [Suspect]
     Active Substance: ASFOTASE ALFA
     Indication: Hypophosphatasia
     Dosage: 1 MG/KG(80MG), TIW
     Route: 058
     Dates: start: 20200605, end: 202101
  2. STRENSIQ [Suspect]
     Active Substance: ASFOTASE ALFA
     Dosage: 80 MG, TIW
     Route: 058
     Dates: start: 202102
  3. STRENSIQ [Suspect]
     Active Substance: ASFOTASE ALFA
     Dosage: 80 MG, SIX TIMES/WEEK
     Route: 058
     Dates: start: 202101, end: 202102

REACTIONS (3)
  - Malaise [Unknown]
  - Loose tooth [Not Recovered/Not Resolved]
  - Headache [Unknown]

NARRATIVE: CASE EVENT DATE: 20210701
